FAERS Safety Report 9521856 (Version 1)
Quarter: 2013Q3

REPORT INFORMATION
  Report Type: Spontaneous
  Country: DE (occurrence: DE)
  Receive Date: 20130913
  Receipt Date: 20130913
  Transmission Date: 20140515
  Serious: Yes (Other)
  Sender: FDA-Public Use
  Company Number: DE-UCBSA-097226

PATIENT
  Age: 23 Year
  Sex: Female

DRUGS (6)
  1. NEUPRO [Suspect]
     Indication: PARKINSON^S DISEASE
     Dosage: OVER THE DAY 8MG/24H SWITCHED TO 2 MG/24H AT NIGHT
  2. PARKINSAN [Concomitant]
     Dosage: 10 MG IN THE MORNING
  3. PARKOPAN [Concomitant]
     Dosage: 5 MG IN THE EVENING
  4. MIRTAZAPIN [Concomitant]
     Dosage: 30 MG IN THE EVENING
  5. QUETIAPIN [Concomitant]
     Dosage: 100 MG  IN THE EVENING
  6. VITAMINE B12 [Concomitant]

REACTIONS (7)
  - Abortion [Unknown]
  - Dystonia [Unknown]
  - Depression [Unknown]
  - Product adhesion issue [Unknown]
  - Inappropriate schedule of drug administration [Unknown]
  - Intentional self-injury [Unknown]
  - Pregnancy [Recovered/Resolved]
